FAERS Safety Report 9358977 (Version 1)
Quarter: 2013Q2

REPORT INFORMATION
  Report Type: Spontaneous
  Country: GB (occurrence: None)
  Receive Date: 20130617
  Receipt Date: 20130617
  Transmission Date: 20140414
  Serious: Yes (Hospitalization, Other)
  Sender: FDA-Public Use
  Company Number: FK201301967

PATIENT
  Age: 29 Year
  Sex: Female

DRUGS (3)
  1. PROGESTERONE INJECTION [Suspect]
     Indication: CONTRACEPTION
     Dosage: UNKNOWN, PROGESTERONE/ESTROGEN INTRAUTERINE DEVICE INTRA-UTERINE
     Route: 015
  2. OESTROGEN (DIETHYLSTILBESTROL) [Concomitant]
  3. HAEM ARGINATE [Concomitant]

REACTIONS (6)
  - Cerebral vasoconstriction [None]
  - Ischaemic stroke [None]
  - Convulsion [None]
  - Hyponatraemia [None]
  - Porphyria acute [None]
  - Confusional state [None]
